FAERS Safety Report 16246854 (Version 1)
Quarter: 2019Q2

REPORT INFORMATION
  Report Type: Spontaneous
  Country: SE (occurrence: SE)
  Receive Date: 20190427
  Receipt Date: 20190427
  Transmission Date: 20190711
  Serious: Yes (Other)
  Sender: FDA-Public Use
  Company Number: SE-ACCORD-124226

PATIENT
  Age: 56 Year
  Sex: Female

DRUGS (4)
  1. SERTRALINE [Suspect]
     Active Substance: SERTRALINE HYDROCHLORIDE
     Indication: PRODUCT USED FOR UNKNOWN INDICATION
     Route: 048
     Dates: start: 20180206, end: 20180220
  2. IMOVANE [Concomitant]
     Active Substance: ZOPICLONE
  3. ESCITALOPRAM [Suspect]
     Active Substance: ESCITALOPRAM OXALATE
     Indication: PRODUCT USED FOR UNKNOWN INDICATION
     Dosage: 10-15MG
     Route: 048
     Dates: start: 20180227, end: 20180321
  4. LERGIGAN [PROMETHAZINE HYDROCHLORIDE] [Concomitant]
     Active Substance: PROMETHAZINE HYDROCHLORIDE

REACTIONS (1)
  - Autoimmune hepatitis [Not Recovered/Not Resolved]

NARRATIVE: CASE EVENT DATE: 20180220
